FAERS Safety Report 26052596 (Version 1)
Quarter: 2025Q4

REPORT INFORMATION
  Report Type: Spontaneous
  Country: US (occurrence: US)
  Receive Date: 20251117
  Receipt Date: 20251117
  Transmission Date: 20260118
  Serious: No
  Sender: ALVOGEN
  Company Number: US-ALVOGEN-2025098409

PATIENT
  Sex: Female

DRUGS (2)
  1. TERIPARATIDE [Suspect]
     Active Substance: TERIPARATIDE
     Indication: Osteoporosis
     Dosage: PEN CURRENTLY IN USE?EXPIRATION DATE: UU-AUG-2026
  2. TERIPARATIDE [Suspect]
     Active Substance: TERIPARATIDE
     Indication: Osteoporosis
     Dosage: HAS NOT YET BEEN USED?EXPIRATION DATE: UU-JUL-2026

REACTIONS (2)
  - Product storage error [Unknown]
  - Product distribution issue [Unknown]
